FAERS Safety Report 10233865 (Version 3)
Quarter: 2014Q3

REPORT INFORMATION
  Report Type: Report from Study
  Country: US (occurrence: US)
  Receive Date: 20140612
  Receipt Date: 20140903
  Transmission Date: 20150326
  Serious: Yes (Other)
  Sender: FDA-Public Use
  Company Number: US-SA-2013SA102352

PATIENT
  Age: 56 Year
  Sex: Male

DRUGS (2)
  1. AUBAGIO [Suspect]
     Active Substance: TERIFLUNOMIDE
     Indication: MULTIPLE SCLEROSIS
     Route: 048
     Dates: start: 20130823, end: 20130920
  2. AUBAGIO [Suspect]
     Active Substance: TERIFLUNOMIDE
     Indication: MULTIPLE SCLEROSIS
     Route: 048
     Dates: start: 20131126, end: 20140602

REACTIONS (6)
  - Nausea [Unknown]
  - Drug dose omission [Unknown]
  - Central nervous system lesion [Unknown]
  - Demyelination [Unknown]
  - Abdominal discomfort [Not Recovered/Not Resolved]
  - Flatulence [Unknown]
